FAERS Safety Report 8608222-0 (Version None)
Quarter: 2012Q3

REPORT INFORMATION
  Report Type: 
  Country: None (occurrence: None)
  Receive Date: 20120821
  Receipt Date: 20120816
  Transmission Date: 20120928
  Serious: Yes (Death)
  Sender: FDA-Public Use
  Company Number: AU-JNJFOC-20120808545

PATIENT
  Age: 57 Year
  Sex: Male

DRUGS (1)
  1. MYLANTA [Suspect]
     Indication: DYSPEPSIA
     Route: 048

REACTIONS (1)
  - MYOCARDIAL INFARCTION [None]
